FAERS Safety Report 23358034 (Version 2)
Quarter: 2024Q1

REPORT INFORMATION
  Report Type: Report from Study
  Country: US (occurrence: US)
  Receive Date: 20240102
  Receipt Date: 20240105
  Transmission Date: 20240410
  Serious: Yes (Congenital Anomaly, Other)
  Sender: FDA-Public Use
  Company Number: US-Accord-398495

PATIENT

DRUGS (5)
  1. PACLITAXEL [Suspect]
     Active Substance: PACLITAXEL
     Dosage: WEEKLY
     Route: 064
  2. TRASTUZUMAB [Suspect]
     Active Substance: TRASTUZUMAB
     Route: 064
  3. PERTUZUMAB [Suspect]
     Active Substance: PERTUZUMAB
     Route: 064
  4. DOXORUBICIN [Suspect]
     Active Substance: DOXORUBICIN
     Route: 064
  5. CYCLOPHOSPHAMIDE [Suspect]
     Active Substance: CYCLOPHOSPHAMIDE
     Route: 064

REACTIONS (5)
  - Pulmonary hypoplasia [Unknown]
  - Foetal exposure during pregnancy [Unknown]
  - Bronchopulmonary dysplasia [Unknown]
  - Renal failure [Unknown]
  - Premature baby [Unknown]
